FAERS Safety Report 5006405-2 (Version None)
Quarter: 2006Q2

REPORT INFORMATION
  Report Type: 
  Country: None (occurrence: None)
  Receive Date: 20060516
  Receipt Date: 20060503
  Transmission Date: 20061013
  Serious: Yes (Hospitalization)
  Sender: FDA-Public Use
  Company Number: 2006PV012423

PATIENT
  Age: 44 Year
  Sex: Female
  Weight: 99.7913 kg

DRUGS (5)
  1. BYETTA [Suspect]
     Indication: DIABETES MELLITUS NON-INSULIN-DEPENDENT
     Dosage: 5 MCG; QD; SC
     Route: 058
     Dates: start: 20060416, end: 20060417
  2. GLYBURIDE [Concomitant]
  3. ACTOS [Concomitant]
  4. LEXAPRO [Concomitant]
  5. CLONAZEPAM [Concomitant]

REACTIONS (6)
  - ARTHRALGIA [None]
  - BLOOD GLUCOSE INCREASED [None]
  - CORONARY ARTERY OCCLUSION [None]
  - FEELING JITTERY [None]
  - INSOMNIA [None]
  - MYOCARDIAL INFARCTION [None]
